FAERS Safety Report 12326347 (Version 1)
Quarter: 2016Q2

REPORT INFORMATION
  Report Type: Spontaneous
  Country: US (occurrence: None)
  Receive Date: 20160502
  Receipt Date: 20160502
  Transmission Date: 20160815
  Serious: Yes (Life-Threatening, Hospitalization)
  Sender: FDA-Public Use
  Company Number: None

PATIENT
  Age: 87 Year
  Sex: Female
  Weight: 60.33 kg

DRUGS (1)
  1. LISINOPRIL, 20 MG SANDOZ [Suspect]
     Active Substance: LISINOPRIL
     Indication: HYPERTENSION
     Route: 048
     Dates: start: 20151029, end: 20160105

REACTIONS (1)
  - Angioedema [None]

NARRATIVE: CASE EVENT DATE: 20160105
